FAERS Safety Report 7460021-1 (Version None)
Quarter: 2011Q2

REPORT INFORMATION
  Report Type: 
  Country: None (occurrence: None)
  Receive Date: 20110505
  Receipt Date: 20110421
  Transmission Date: 20111010
  Serious: Yes (Congenital Anomaly)
  Sender: FDA-Public Use
  Company Number: GB-GILEAD-2011-0038743

PATIENT
  Age: 31 Year
  Sex: Female

DRUGS (3)
  1. RITONAVIR [Concomitant]
     Indication: HIV INFECTION
     Route: 048
  2. REYATAZ [Concomitant]
     Indication: HIV INFECTION
     Route: 048
     Dates: start: 20101214
  3. TRUVADA [Suspect]
     Indication: HIV INFECTION
     Route: 048
     Dates: start: 20101214

REACTIONS (2)
  - PREGNANCY [None]
  - PLACENTA PRAEVIA [None]
